FAERS Safety Report 22004617 (Version 1)
Quarter: 2023Q1

REPORT INFORMATION
  Report Type: Spontaneous
  Country: JP (occurrence: JP)
  Receive Date: 20230217
  Receipt Date: 20230217
  Transmission Date: 20230418
  Serious: Yes (Hospitalization)
  Sender: FDA-Public Use
  Company Number: JP-SA-SAC20230123001259

PATIENT
  Age: 89 Year
  Sex: Female

DRUGS (1)
  1. RENAGEL [Suspect]
     Active Substance: SEVELAMER HYDROCHLORIDE
     Indication: Product used for unknown indication
     Dosage: UNK
     Route: 048

REACTIONS (2)
  - Injury [Not Recovered/Not Resolved]
  - Fall [Unknown]
